FAERS Safety Report 18840001 (Version 3)
Quarter: 2021Q3

REPORT INFORMATION
  Report Type: Spontaneous
  Country: JP (occurrence: JP)
  Receive Date: 20210203
  Receipt Date: 20210907
  Transmission Date: 20211014
  Serious: Yes (Other)
  Sender: FDA-Public Use
  Company Number: JP-AMGEN-JPNSP2020208227

PATIENT
  Age: 85 Year
  Sex: Female

DRUGS (1)
  1. BLINCYTO [Suspect]
     Active Substance: BLINATUMOMAB
     Indication: ACUTE LYMPHOCYTIC LEUKAEMIA RECURRENT
     Dosage: UNK
     Route: 065
     Dates: start: 20200201, end: 2020

REACTIONS (3)
  - Pyrexia [Recovered/Resolved]
  - Acute lymphocytic leukaemia recurrent [Unknown]
  - Compression fracture [Unknown]

NARRATIVE: CASE EVENT DATE: 2020
